FAERS Safety Report 15516209 (Version 1)
Quarter: 2018Q4

REPORT INFORMATION
  Report Type: Spontaneous
  Country: US (occurrence: US)
  Receive Date: 20181017
  Receipt Date: 20181017
  Transmission Date: 20190205
  Serious: No
  Sender: FDA-Public Use
  Company Number: US-ACCORD-069059

PATIENT
  Age: 39 Year
  Sex: Female
  Weight: 50.8 kg

DRUGS (1)
  1. SPIRONOLACTONE ACCORD [Suspect]
     Active Substance: SPIRONOLACTONE
     Indication: HORMONE LEVEL ABNORMAL
     Dosage: 1 TABLET 3-4 TIMES A DAY
     Route: 048
     Dates: start: 201711, end: 20180529

REACTIONS (4)
  - Acne [Recovering/Resolving]
  - Depression [Unknown]
  - Scar [Recovering/Resolving]
  - Off label use [Unknown]
